FAERS Safety Report 13638583 (Version 1)
Quarter: 2017Q2

REPORT INFORMATION
  Report Type: Report from Study
  Country: IT (occurrence: IT)
  Receive Date: 20170609
  Receipt Date: 20170609
  Transmission Date: 20170830
  Serious: Yes (Death, Life-Threatening, Hospitalization, Disabling, Other)
  Sender: FDA-Public Use
  Company Number: PHHO2010IT02152

PATIENT
  Age: 46 Year
  Sex: Female

DRUGS (6)
  1. METRONIDAZOL [Concomitant]
     Active Substance: METRONIDAZOLE
     Indication: PRODUCT USED FOR UNKNOWN INDICATION
     Route: 065
  2. MEROPENEM. [Concomitant]
     Active Substance: MEROPENEM
     Indication: PRODUCT USED FOR UNKNOWN INDICATION
     Route: 065
  3. CYTARABINE. [Suspect]
     Active Substance: CYTARABINE
     Indication: ACUTE MYELOID LEUKAEMIA
     Dosage: 200 MG/M2, QD (DAYS 1-7)
     Route: 042
     Dates: start: 20100122
  4. CGP 41251 [Suspect]
     Active Substance: MIDOSTAURIN
     Indication: ACUTE MYELOID LEUKAEMIA
     Dosage: 50 MG, BID
     Route: 048
     Dates: start: 20100129, end: 20100203
  5. COLESTYRAMINE [Concomitant]
     Active Substance: CHOLESTYRAMINE
     Indication: PRODUCT USED FOR UNKNOWN INDICATION
     Route: 065
  6. DAUNORUBICIN [Suspect]
     Active Substance: DAUNORUBICIN
     Indication: ACUTE MYELOID LEUKAEMIA
     Dosage: 60MG/M^2 QD  DAYS 1, 2 AND 3
     Route: 042
     Dates: start: 20100122

REACTIONS (13)
  - Mucosal inflammation [Not Recovered/Not Resolved]
  - Myocardial infarction [Fatal]
  - Renal tubular necrosis [Fatal]
  - Acute kidney injury [Unknown]
  - Necrosis ischaemic [Fatal]
  - Hepatosplenomegaly [Unknown]
  - Pulmonary congestion [Fatal]
  - Leukaemic infiltration hepatic [Fatal]
  - Hydrocholecystis [Unknown]
  - Pseudomembranous colitis [Not Recovered/Not Resolved]
  - Uterine disorder [Unknown]
  - Pleural effusion [Unknown]
  - Colitis [Unknown]

NARRATIVE: CASE EVENT DATE: 20100129
